FAERS Safety Report 8761077 (Version 1)
Quarter: 2012Q4

REPORT INFORMATION
  Report Type: 
  Country: US (occurrence: US)
  Receive Date: 20120830
  Receipt Date: 20120830
  Transmission Date: 20130627
  Serious: Yes (Hospitalization)
  Sender: FDA-Public Use
  Company Number: US-AMGEN-USASP2012054285

PATIENT
  Age: 62 Year
  Sex: Male

DRUGS (1)
  1. ENBREL [Suspect]
     Indication: RHEUMATOID ARTHRITIS
     Dosage: 50 mg, qwk
     Route: 058
     Dates: start: 20090922, end: 20120810

REACTIONS (4)
  - Spinal fusion surgery [Recovered/Resolved]
  - Nerve compression [Not Recovered/Not Resolved]
  - Arthralgia [Not Recovered/Not Resolved]
  - Grip strength decreased [Not Recovered/Not Resolved]
